FAERS Safety Report 9174699 (Version 4)
Quarter: 2013Q2

REPORT INFORMATION
  Report Type: Spontaneous
  Country: US (occurrence: US)
  Receive Date: 20130320
  Receipt Date: 20130620
  Transmission Date: 20140414
  Serious: No
  Sender: FDA-Public Use
  Company Number: US-VERTEX PHARMACEUTICALS INC.-2013-003804

PATIENT
  Age: 52 Year
  Sex: Male

DRUGS (6)
  1. INCIVEK [Suspect]
     Indication: HEPATITIS C
     Dosage: 750 MG, TID
     Route: 048
     Dates: start: 20130311, end: 201306
  2. RIBAVIRIN [Suspect]
     Indication: HEPATITIS C
     Dosage: UNK
     Dates: start: 20130311
  3. PEGASYS [Suspect]
     Indication: HEPATITIS C
     Dosage: UNK
     Dates: start: 20130311
  4. PERCOCET [Concomitant]
     Dosage: UNK, PRN
  5. NEURONTIN [Concomitant]
  6. CYMBALTA [Concomitant]

REACTIONS (3)
  - Sunburn [Not Recovered/Not Resolved]
  - Rash papular [Recovered/Resolved]
  - Blister [Not Recovered/Not Resolved]
